FAERS Safety Report 10024117 (Version 1)
Quarter: 2014Q1

REPORT INFORMATION
  Report Type: Spontaneous
  Country: US (occurrence: None)
  Receive Date: 20140304
  Receipt Date: 20140304
  Transmission Date: 20141002
  Serious: Yes (Other)
  Sender: FDA-Public Use
  Company Number: RB-55915-2013

PATIENT
  Sex: Female

DRUGS (1)
  1. SUBOXONE [Suspect]
     Indication: DRUG DEPENDENCE
     Route: 060

REACTIONS (5)
  - Pharyngeal oedema [None]
  - Hypersensitivity [None]
  - Urticaria [None]
  - Swelling face [None]
  - Pruritus [None]
